FAERS Safety Report 6240650-3 (Version None)
Quarter: 2009Q2

REPORT INFORMATION
  Report Type: 
  Country: None (occurrence: None)
  Receive Date: 20090623
  Receipt Date: 20081201
  Transmission Date: 20091009
  Serious: No
  Sender: FDA-Public Use
  Company Number: US-ASTRAZENECA-2008UW26663

PATIENT
  Sex: Female

DRUGS (3)
  1. PULMICORT FLEXHALER [Suspect]
     Indication: ASTHMA
     Dosage: 90 MCG 2 PUFFS TWICE A DAY
     Route: 055
  2. PULMICORT FLEXHALER [Suspect]
     Dosage: 180 MCG 2 PUFFS TWICE A DAY
     Route: 055
  3. XOPENEX [Concomitant]

REACTIONS (1)
  - WHEEZING [None]
